FAERS Safety Report 20926400 (Version 6)
Quarter: 2023Q1

REPORT INFORMATION
  Report Type: Report from Study
  Country: JP (occurrence: JP)
  Receive Date: 20220607
  Receipt Date: 20230222
  Transmission Date: 20230418
  Serious: Yes (Death, Other)
  Sender: FDA-Public Use
  Company Number: JP-NIPPON SHINYAKU-NIP-2022-000027

PATIENT

DRUGS (7)
  1. VILTEPSO [Suspect]
     Active Substance: VILTOLARSEN
     Indication: Duchenne muscular dystrophy
     Dosage: 8 VIALS/DAY, QWK
     Route: 041
     Dates: start: 20220427, end: 20220518
  2. LANSOPRAZOLE [Concomitant]
     Active Substance: LANSOPRAZOLE
     Indication: Gastrooesophageal reflux disease
     Dosage: 15 MG
     Route: 065
  3. BROTIZOLAM [Concomitant]
     Active Substance: BROTIZOLAM
     Indication: Insomnia
     Dosage: 0.25 MG
     Route: 065
     Dates: end: 20220526
  4. LORAZEPAM [Concomitant]
     Active Substance: LORAZEPAM
     Indication: Anxiety disorder
     Dosage: 0.5 MG
     Route: 065
     Dates: end: 20220526
  5. MOSAPRIDE CITRATE DIHYDRATE [Concomitant]
     Active Substance: MOSAPRIDE CITRATE DIHYDRATE
     Indication: Gastrooesophageal reflux disease
     Dosage: 15 MG
     Route: 065
     Dates: end: 20220526
  6. LACTULOSE [Concomitant]
     Active Substance: LACTULOSE
     Indication: Constipation
     Dosage: 6.5 GRAM
     Route: 065
     Dates: end: 20220526
  7. BISOPROLOL [Concomitant]
     Active Substance: BISOPROLOL
     Indication: Right ventricular failure
     Dosage: 2 MG
     Route: 065
     Dates: end: 20220526

REACTIONS (5)
  - Respiratory failure [Fatal]
  - Oliguria [Recovered/Resolved with Sequelae]
  - Oedema [Recovered/Resolved with Sequelae]
  - Respiratory failure [Unknown]
  - Renal impairment [Not Recovered/Not Resolved]

NARRATIVE: CASE EVENT DATE: 20220523
